FAERS Safety Report 6639526-9 (Version None)
Quarter: 2010Q1

REPORT INFORMATION
  Report Type: 
  Country: None (occurrence: None)
  Receive Date: 20100318
  Receipt Date: 20100303
  Transmission Date: 20100710
  Serious: Yes (Hospitalization, Disabling)
  Sender: FDA-Public Use
  Company Number: US-ELI_LILLY_AND_COMPANY-US201003002129

PATIENT
  Sex: Female

DRUGS (16)
  1. FORTEO [Suspect]
     Indication: OSTEOPOROSIS
     Dosage: 20 UG, DAILY (1/D)
     Dates: start: 20090701
  2. LETAIRIS [Concomitant]
  3. DARVON [Concomitant]
     Dates: start: 20090701
  4. LIPITOR [Concomitant]
  5. IMDUR [Concomitant]
  6. NITROGLYCERIN [Concomitant]
  7. ALBUTEROL [Concomitant]
  8. FUROSEMIDE [Concomitant]
  9. HYDROCHLOROTHIAZIDE [Concomitant]
  10. PLAVIX [Concomitant]
  11. TOPROL-XL [Concomitant]
  12. NEXIUM [Concomitant]
  13. NORVASC [Concomitant]
  14. ASPIRIN [Concomitant]
  15. LEVOTHYROXINE SODIUM [Concomitant]
  16. OXYGEN [Concomitant]

REACTIONS (1)
  - PULMONARY ARTERIAL HYPERTENSION [None]
